FAERS Safety Report 7282038-2 (Version None)
Quarter: 2011Q1

REPORT INFORMATION
  Report Type: 
  Country: None (occurrence: None)
  Receive Date: 20110208
  Receipt Date: 20110120
  Transmission Date: 20110831
  Serious: Yes (Other)
  Sender: FDA-Public Use
  Company Number: PHHY2011US04638

PATIENT
  Age: 55 Year
  Sex: Male

DRUGS (4)
  1. ETHAMBUTOL HYDROCHLORIDE [Suspect]
     Dosage: 1800 MG, (26MG/KG)
  2. ETHAMBUTOL HYDROCHLORIDE [Suspect]
     Dosage: 24MG/KG/SAY
  3. RIFAMPICIN [Suspect]
     Dosage: 600 MG, UNK
  4. ISONIAZID [Suspect]
     Indication: TUBERCULOSIS
     Dosage: 300 MG, DAILY

REACTIONS (9)
  - VISUAL ACUITY REDUCED [None]
  - RETINAL DISORDER [None]
  - COLOUR BLINDNESS [None]
  - BLINDNESS [None]
  - OPTIC NERVE CUPPING [None]
  - OPTIC NEUROPATHY [None]
  - SCOTOMA [None]
  - OPTIC ATROPHY [None]
  - VISUAL FIELD DEFECT [None]
